FAERS Safety Report 17273625 (Version 1)
Quarter: 2020Q1

REPORT INFORMATION
  Report Type: Spontaneous
  Country: US (occurrence: US)
  Receive Date: 20191224
  Receipt Date: 20191224
  Transmission Date: 20200409
  Serious: No
  Sender: FDA-Public Use
  Company Number: None

PATIENT
  Sex: Male

DRUGS (2)
  1. TAKHZYRO [Suspect]
     Active Substance: LANADELUMAB-FLYO
  2. ICATIBANT ACETATE [Suspect]
     Active Substance: ICATIBANT ACETATE
     Indication: COMPLEMENT FIXATION ABNORMAL
     Route: 058
     Dates: start: 201911

REACTIONS (4)
  - Swelling face [None]
  - Drug ineffective [None]
  - Swelling [None]
  - Pharyngeal swelling [None]
